FAERS Safety Report 18366633 (Version 3)
Quarter: 2020Q4

REPORT INFORMATION
  Report Type: Spontaneous
  Country: US (occurrence: US)
  Receive Date: 20201009
  Receipt Date: 20201021
  Transmission Date: 20210114
  Serious: Yes (Death, Hospitalization)
  Sender: FDA-Public Use
  Company Number: US-SEATTLE GENETICS-2020SGN04209

PATIENT
  Age: 40 Year
  Sex: Female

DRUGS (2)
  1. CAPECITABINE. [Concomitant]
     Active Substance: CAPECITABINE
  2. TUKYSA [Suspect]
     Active Substance: TUCATINIB
     Indication: BREAST CANCER FEMALE
     Dosage: 300 MG, BID
     Route: 065
     Dates: start: 20200904, end: 20200924

REACTIONS (10)
  - Breast cancer [Fatal]
  - Fibrosis [Unknown]
  - Fatigue [Unknown]
  - Bacteraemia [Unknown]
  - Pneumothorax [Unknown]
  - Pneumonia [Unknown]
  - Product dose omission issue [Unknown]
  - Metastases to central nervous system [Unknown]
  - Diarrhoea [Unknown]
  - Pneumonitis [Unknown]

NARRATIVE: CASE EVENT DATE: 20201006
